FAERS Safety Report 20756415 (Version 1)
Quarter: 2022Q2

REPORT INFORMATION
  Report Type: Spontaneous
  Country: US (occurrence: None)
  Receive Date: 20220427
  Receipt Date: 20220427
  Transmission Date: 20220721
  Serious: No
  Sender: FDA-Public Use
  Company Number: None

PATIENT
  Age: 46 Year
  Sex: Female
  Weight: 73.35 kg

DRUGS (1)
  1. WEGOVY [Suspect]
     Active Substance: SEMAGLUTIDE

REACTIONS (6)
  - Insomnia [None]
  - Headache [None]
  - Palpitations [None]
  - Palpitations [None]
  - Abdominal pain upper [None]
  - Flatulence [None]

NARRATIVE: CASE EVENT DATE: 20220426
